FAERS Safety Report 15651213 (Version 2)
Quarter: 2019Q2

REPORT INFORMATION
  Report Type: Spontaneous
  Country: US (occurrence: US)
  Receive Date: 20181123
  Receipt Date: 20190503
  Transmission Date: 20190711
  Serious: Yes (Other)
  Sender: FDA-Public Use
  Company Number: US-AUROBINDO-AUR-APU-2018-056458

PATIENT

DRUGS (2)
  1. TOPROL XL [Concomitant]
     Active Substance: METOPROLOL SUCCINATE
     Indication: PRODUCT USED FOR UNKNOWN INDICATION
     Dosage: 25 MILLIGRAM
  2. ONDANSETRON ORALLY DISINTEGRATING TABLETS USP 4 MG [Suspect]
     Active Substance: ONDANSETRON
     Indication: PRODUCT USED FOR UNKNOWN INDICATION
     Dosage: UNK
     Route: 065
     Dates: start: 20181112, end: 20181112

REACTIONS (4)
  - Burn oral cavity [Unknown]
  - Product substitution issue [Unknown]
  - Hypoaesthesia oral [Unknown]
  - Swollen tongue [Unknown]

NARRATIVE: CASE EVENT DATE: 20181112
